FAERS Safety Report 5607286-6 (Version None)
Quarter: 2008Q1

REPORT INFORMATION
  Report Type: 
  Country: None (occurrence: None)
  Receive Date: 20080128
  Receipt Date: 20080128
  Transmission Date: 20080703
  Serious: Yes (Life-Threatening, Hospitalization)
  Sender: FDA-Public Use
  Company Number: None

PATIENT
  Sex: Female
  Weight: 58.514 kg

DRUGS (1)
  1. CHANTIX [Suspect]
     Indication: SMOKING CESSATION THERAPY
     Dosage: 0.5/1 MG BID PO
     Route: 048
     Dates: start: 20071230, end: 20080119

REACTIONS (12)
  - ABNORMAL BEHAVIOUR [None]
  - AGGRESSION [None]
  - AMNESIA [None]
  - ANGER [None]
  - COMA [None]
  - CONTUSION [None]
  - FACE INJURY [None]
  - IRRITABILITY [None]
  - LACERATION [None]
  - NAUSEA [None]
  - STUPOR [None]
  - VOMITING [None]
